FAERS Safety Report 18384247 (Version 3)
Quarter: 2021Q2

REPORT INFORMATION
  Report Type: Spontaneous
  Country: US (occurrence: US)
  Receive Date: 20201014
  Receipt Date: 20210412
  Transmission Date: 20210717
  Serious: No
  Sender: FDA-Public Use
  Company Number: US-INTRA-CELLULAR THERAPIES, INC.-2020ICT00119

PATIENT
  Age: 36 Year
  Sex: Male
  Weight: 181.41 kg

DRUGS (11)
  1. RISPERDAL [Suspect]
     Active Substance: RISPERIDONE
     Indication: SCHIZOPHRENIA
     Dosage: UNK
  2. CAPLYTA [Suspect]
     Active Substance: LUMATEPERONE
     Indication: SCHIZOPHRENIA
     Dosage: 42 MG, 1X/DAY AT NIGHT
     Route: 048
     Dates: start: 20200902, end: 202009
  3. CAPLYTA [Suspect]
     Active Substance: LUMATEPERONE
     Indication: THOUGHT BLOCKING
  4. LOXITANE [Concomitant]
     Active Substance: LOXAPINE SUCCINATE
     Dosage: 10 MG, 2X/DAY
     Dates: start: 20200923
  5. CAPLYTA [Suspect]
     Active Substance: LUMATEPERONE
     Indication: PSYCHOTIC DISORDER
     Dosage: 42 MG, 1X/DAY IN THE MORNING
     Route: 048
     Dates: start: 202009, end: 202009
  6. CAPLYTA [Suspect]
     Active Substance: LUMATEPERONE
     Indication: DELUSION
     Dosage: 42 MG, 1X/DAY AT NIGHT FOR ORGANIZATION
     Route: 048
     Dates: start: 202009
  7. CAPLYTA [Suspect]
     Active Substance: LUMATEPERONE
     Indication: COMPULSIONS
  8. RISPERDAL [Suspect]
     Active Substance: RISPERIDONE
     Dosage: ^TAPERED OFF^
     Dates: start: 2020, end: 20200902
  9. MULTIPLE ANTIPSYCHOTICS [Concomitant]
     Dosage: UNK
     Dates: start: 2007
  10. CAPLYTA [Suspect]
     Active Substance: LUMATEPERONE
     Indication: THINKING ABNORMAL
  11. RISPERDAL [Suspect]
     Active Substance: RISPERIDONE
     Dosage: 6 MG
     Dates: start: 20200902, end: 2020

REACTIONS (7)
  - Lacrimation increased [Recovered/Resolved]
  - Sedation [Recovered/Resolved]
  - Halo vision [Recovered/Resolved]
  - Asthenopia [Recovered/Resolved]
  - Dysarthria [Recovering/Resolving]
  - Disinhibition [Unknown]
  - Somnolence [Recovered/Resolved]

NARRATIVE: CASE EVENT DATE: 2020
